FAERS Safety Report 8814343 (Version 5)
Quarter: 2012Q4

REPORT INFORMATION
  Report Type: 
  Country: US (occurrence: US)
  Receive Date: 20120928
  Receipt Date: 20121207
  Transmission Date: 20130627
  Serious: Yes (Hospitalization, Other)
  Sender: FDA-Public Use
  Company Number: US-009507513-1209USA010474

PATIENT
  Age: 53 None
  Sex: Male

DRUGS (5)
  1. PEG-INTRON [Suspect]
     Indication: HEPATITIS C
     Dosage: redipen
     Dates: start: 20120922, end: 20121117
  2. PEG-INTRON [Suspect]
     Dosage: UNK
     Dates: start: 20060101
  3. RIBAVIRIN [Suspect]
     Indication: HEPATITIS C
     Dosage: 3 pills 2 times a day
     Dates: start: 20120922
  4. RIBAVIRIN [Suspect]
     Dosage: 2 pills 2 times a day
     Dates: end: 20121117
  5. VICTRELIS [Suspect]
     Indication: HEPATITIS C
     Dosage: UNK
     Dates: start: 20121020, end: 20121117

REACTIONS (11)
  - Platelet count decreased [Unknown]
  - Platelet count decreased [Unknown]
  - White blood cell count decreased [Unknown]
  - Memory impairment [Unknown]
  - Oropharyngeal pain [Unknown]
  - Rhinorrhoea [Unknown]
  - Back pain [Unknown]
  - Influenza [Unknown]
  - Fatigue [Unknown]
  - Asthenia [Unknown]
  - Malaise [Unknown]
